FAERS Safety Report 6334494-1 (Version None)
Quarter: 2009Q3

REPORT INFORMATION
  Report Type: 
  Country: None (occurrence: None)
  Receive Date: 20090826
  Receipt Date: 20090113
  Transmission Date: 20100115
  Serious: No
  Sender: FDA-Public Use
  Company Number: 1-17274632

PATIENT
  Age: 6 Year
  Sex: Female
  Weight: 27.6694 kg

DRUGS (2)
  1. DESONIDE [Suspect]
     Indication: INFLAMMATION
     Dosage: ONCE, TOPICAL
     Route: 061
     Dates: start: 20090112, end: 20090112
  2. PREVACID [Concomitant]

REACTIONS (2)
  - APPLICATION SITE DISCOLOURATION [None]
  - WRONG DRUG ADMINISTERED [None]
